FAERS Safety Report 17693944 (Version 1)
Quarter: 2020Q2

REPORT INFORMATION
  Report Type: Spontaneous
  Country: CH (occurrence: CH)
  Receive Date: 20200422
  Receipt Date: 20200422
  Transmission Date: 20200714
  Serious: Yes (Hospitalization)
  Sender: FDA-Public Use
  Company Number: CH-PFIZER INC-2020156170

PATIENT
  Age: 41 Year
  Sex: Female

DRUGS (12)
  1. NATULAN [Suspect]
     Active Substance: PROCARBAZINE HYDROCHLORIDE
     Indication: HODGKIN^S DISEASE
     Dosage: UNK
     Dates: start: 20200303
  2. ENDOXAN-BAXTER [Suspect]
     Active Substance: CYCLOPHOSPHAMIDE
     Dosage: 1 DF, 1X/DAY (DOSAGE UNKNOWN)
     Route: 042
     Dates: start: 20200324, end: 20200324
  3. PREDNISON STREULI [Suspect]
     Active Substance: PREDNISONE
     Dosage: 70 MG, 1X/DAY
     Route: 048
     Dates: start: 20200324, end: 20200325
  4. NATULAN [Suspect]
     Active Substance: PROCARBAZINE HYDROCHLORIDE
     Dosage: 1 DF, 1X/DAY (DOSAGE UNKNOWN)
     Route: 048
     Dates: start: 20200324, end: 20200324
  5. ETOPOPHOS [Suspect]
     Active Substance: ETOPOSIDE PHOSPHATE
     Dosage: 1 DF, 1X/DAY (DOSAGE UNKNOWN)
     Route: 042
     Dates: start: 20200324, end: 20200324
  6. ETOPOPHOS [Suspect]
     Active Substance: ETOPOSIDE PHOSPHATE
     Indication: HODGKIN^S DISEASE
     Dosage: UNK
     Dates: start: 20200303
  7. PANTOZOL [Concomitant]
     Active Substance: PANTOPRAZOLE SODIUM
     Indication: GASTROOESOPHAGEAL REFLUX DISEASE
     Dosage: 40 MG, 1X/DAY (EXACT DATE OF START OF THERAPY UNKNOWN)
     Route: 048
     Dates: start: 202003
  8. ADRIBLASTIN [Suspect]
     Active Substance: DOXORUBICIN HYDROCHLORIDE
     Dosage: 1 DF, 1X/DAY (DOSAGE UNKNOWN)
     Route: 042
     Dates: start: 20200324, end: 20200324
  9. VALACICLOVIR SANDOZ [Concomitant]
     Active Substance: VALACYCLOVIR HYDROCHLORIDE
     Dosage: 500 MG, 2X/DAY (EXACT DATE OF START OF THERAPY UNKNOWN)
     Route: 048
     Dates: start: 202003
  10. ADRIBLASTIN [Suspect]
     Active Substance: DOXORUBICIN HYDROCHLORIDE
     Indication: HODGKIN^S DISEASE
     Dosage: UNK
     Dates: start: 20200303
  11. BACTRIM [Concomitant]
     Active Substance: SULFAMETHOXAZOLE\TRIMETHOPRIM
     Dosage: UNK , 3 TABLETS PER WEEK (EXACT DATE OF START OF THERAPY UNKNOWN)
     Route: 048
     Dates: start: 202003
  12. ENDOXAN-BAXTER [Suspect]
     Active Substance: CYCLOPHOSPHAMIDE
     Indication: HODGKIN^S DISEASE
     Dosage: UNK
     Dates: start: 20200303

REACTIONS (3)
  - Type IV hypersensitivity reaction [Recovered/Resolved]
  - Pyrexia [Recovered/Resolved]
  - Rash maculo-papular [Recovered/Resolved]

NARRATIVE: CASE EVENT DATE: 20200324
